FAERS Safety Report 11748390 (Version 1)
Quarter: 2015Q4

REPORT INFORMATION
  Report Type: Spontaneous
  Country: US (occurrence: US)
  Receive Date: 20151117
  Receipt Date: 20151117
  Transmission Date: 20160304
  Serious: No
  Sender: FDA-Public Use
  Company Number: US-ASTRAZENECA-2015SF07584

PATIENT
  Sex: Female
  Weight: 54.4 kg

DRUGS (6)
  1. PREVACID [Concomitant]
     Active Substance: LANSOPRAZOLE
  2. RITUXAN [Concomitant]
     Active Substance: RITUXIMAB
     Indication: ARTHRITIS
  3. NEXIUM [Suspect]
     Active Substance: ESOMEPRAZOLE MAGNESIUM
     Indication: GASTROOESOPHAGEAL REFLUX DISEASE
     Route: 048
     Dates: start: 2012, end: 2014
  4. NEXIUM [Suspect]
     Active Substance: ESOMEPRAZOLE MAGNESIUM
     Indication: GASTROOESOPHAGEAL REFLUX DISEASE
     Route: 048
     Dates: start: 2014
  5. IBUPROFEN. [Concomitant]
     Active Substance: IBUPROFEN
     Indication: TEETHING
     Dates: start: 201509
  6. NEXIUM [Suspect]
     Active Substance: ESOMEPRAZOLE MAGNESIUM
     Indication: GASTROOESOPHAGEAL REFLUX DISEASE
     Route: 048
     Dates: start: 2015

REACTIONS (8)
  - Insomnia [Unknown]
  - Nervousness [Unknown]
  - Malaise [Unknown]
  - Off label use [Unknown]
  - Fungal infection [Unknown]
  - Toothache [Unknown]
  - Adverse event [Unknown]
  - Tremor [Unknown]
